FAERS Safety Report 5064500-6 (Version None)
Quarter: 2006Q3

REPORT INFORMATION
  Report Type: 
  Country: None (occurrence: None)
  Receive Date: 20060728
  Receipt Date: 20060712
  Transmission Date: 20061208
  Serious: Yes (Other)
  Sender: FDA-Public Use
  Company Number: JP-AVENTIS-200612158JP

PATIENT

DRUGS (3)
  1. TAXOTERE [Suspect]
     Indication: OESOPHAGEAL CARCINOMA
     Route: 041
  2. FLUOROPLEX [Concomitant]
     Indication: OESOPHAGEAL CARCINOMA
  3. RADIOTHERAPY [Concomitant]
     Indication: OESOPHAGEAL CARCINOMA
     Dosage: DOSE: 40 TO 60 GY/TOTAL

REACTIONS (4)
  - AORTIC ANEURYSM [None]
  - LEUKOPENIA [None]
  - OESOPHAGITIS [None]
  - OESOPHAGOBRONCHIAL FISTULA [None]
